FAERS Safety Report 6594321-4 (Version None)
Quarter: 2010Q1

REPORT INFORMATION
  Report Type: 
  Country: None (occurrence: None)
  Receive Date: 20100222
  Receipt Date: 20100212
  Transmission Date: 20100710
  Serious: Yes (Other)
  Sender: FDA-Public Use
  Company Number: DE-ABBOTT-09P-062-0570154-00

PATIENT
  Sex: Female
  Weight: 105 kg

DRUGS (5)
  1. HUMIRA [Suspect]
     Indication: CROHN'S DISEASE
     Dates: start: 20080201, end: 20090424
  2. SYTEMIC STEROIDS [Concomitant]
     Indication: CROHN'S DISEASE
  3. AZATHIOPRIN [Concomitant]
     Indication: CROHN'S DISEASE
  4. LOPERAMIDE [Concomitant]
     Indication: DRUG USE FOR UNKNOWN INDICATION
  5. DEPO-CLINOVIR [Concomitant]
     Indication: DRUG USE FOR UNKNOWN INDICATION
     Dosage: EVERY 3 MONTHS

REACTIONS (2)
  - RENAL COLIC [None]
  - URINARY RETENTION [None]
